FAERS Safety Report 20887142 (Version 3)
Quarter: 2022Q3

REPORT INFORMATION
  Report Type: Spontaneous
  Country: US (occurrence: US)
  Receive Date: 20220528
  Receipt Date: 20220706
  Transmission Date: 20221027
  Serious: No
  Sender: FDA-Public Use
  Company Number: US-BRISTOL-MYERS SQUIBB COMPANY-2022-048782

PATIENT
  Age: 76 Year
  Sex: Female

DRUGS (1)
  1. REVLIMID [Suspect]
     Active Substance: LENALIDOMIDE
     Indication: Plasma cell myeloma
     Route: 048

REACTIONS (7)
  - Diarrhoea [Recovered/Resolved]
  - Asthenia [Unknown]
  - Hot flush [Unknown]
  - Headache [Recovered/Resolved]
  - Lip dry [Unknown]
  - Product dose omission issue [Unknown]
  - Product distribution issue [Unknown]
